FAERS Safety Report 6449328-4 (Version None)
Quarter: 2009Q4

REPORT INFORMATION
  Report Type: 
  Country: None (occurrence: None)
  Receive Date: 20091120
  Receipt Date: 20091109
  Transmission Date: 20100525
  Serious: Yes (Death)
  Sender: FDA-Public Use
  Company Number: FR-ELI_LILLY_AND_COMPANY-FR200908003869

PATIENT
  Age: 81 Year
  Sex: Female

DRUGS (3)
  1. FORTEO [Suspect]
     Indication: OSTEOPOROSIS
     Dosage: 20 UG, DAILY (1/D)
     Route: 065
     Dates: start: 20080424
  2. CORTANCYL [Concomitant]
     Dosage: 10 MG, DAILY (1/D)
     Route: 048
  3. PREVISCAN [Concomitant]
     Route: 048

REACTIONS (1)
  - COAGULOPATHY [None]
